FAERS Safety Report 12475719 (Version 2)
Quarter: 2016Q3

REPORT INFORMATION
  Report Type: Spontaneous
  Country: US (occurrence: US)
  Receive Date: 20160617
  Receipt Date: 20160819
  Transmission Date: 20161109
  Serious: Yes (Death, Hospitalization)
  Sender: FDA-Public Use
  Company Number: US-JNJFOC-20160614501

PATIENT

DRUGS (2)
  1. RISPERIDONE. [Suspect]
     Active Substance: RISPERIDONE
     Indication: DELIRIUM
     Route: 065
  2. HALOPERIDOL. [Suspect]
     Active Substance: HALOPERIDOL
     Indication: DELIRIUM
     Route: 065

REACTIONS (10)
  - Cardiovascular disorder [Unknown]
  - Off label use [Unknown]
  - Mental disorder [Unknown]
  - Renal injury [Unknown]
  - Product use issue [Unknown]
  - Infection [Unknown]
  - Death [Fatal]
  - Electrocardiogram QT prolonged [Unknown]
  - Nervous system disorder [Unknown]
  - Electrolyte imbalance [Unknown]
